FAERS Safety Report 4473578-X (Version None)
Quarter: 2004Q4

REPORT INFORMATION
  Report Type: 
  Country: None (occurrence: None)
  Receive Date: 20041013
  Receipt Date: 20041007
  Transmission Date: 20050328
  Serious: Yes (Disabling)
  Sender: FDA-Public Use
  Company Number: US-MERCK-0410USA01029

PATIENT
  Age: 64 Year
  Sex: Female

DRUGS (9)
  1. LORTAB [Concomitant]
     Route: 065
  2. PERCOCET [Concomitant]
     Route: 065
  3. BUMEX [Concomitant]
     Route: 065
  4. KLONOPIN [Concomitant]
     Route: 065
  5. FLEXERIL [Concomitant]
     Route: 048
  6. NEURONTIN [Concomitant]
     Route: 065
  7. ALTACE [Concomitant]
     Route: 065
  8. VIOXX [Suspect]
     Indication: ARTHRITIS
     Route: 048
     Dates: start: 20010101, end: 20040101
  9. VIOXX [Suspect]
     Indication: FIBROMYALGIA
     Route: 048
     Dates: start: 20010101, end: 20040101

REACTIONS (5)
  - ADVERSE EVENT [None]
  - ASTHENIA [None]
  - CHEST PAIN [None]
  - HEADACHE [None]
  - PAIN IN EXTREMITY [None]
